FAERS Safety Report 15996119 (Version 2)
Quarter: 2019Q1

REPORT INFORMATION
  Report Type: Spontaneous
  Country: US (occurrence: US)
  Receive Date: 20190222
  Receipt Date: 20190228
  Transmission Date: 20190418
  Serious: Yes (Death)
  Sender: FDA-Public Use
  Company Number: US-MALLINCKRODT-T201901946

PATIENT

DRUGS (1)
  1. UVADEX [Suspect]
     Active Substance: METHOXSALEN
     Indication: CHRONIC GRAFT VERSUS HOST DISEASE
     Dosage: 2 TIMES/WEEK FOR 4 WEEKS FOLLOWED BY 2 TREATMENTS EVERY 2 WEEKS FOR THE NEXT 8 WEEKS
     Route: 057

REACTIONS (2)
  - Product use in unapproved indication [Unknown]
  - Sepsis [Fatal]
